FAERS Safety Report 8166288-9 (Version None)
Quarter: 2012Q1

REPORT INFORMATION
  Report Type: 
  Country: None (occurrence: None)
  Receive Date: 20120227
  Receipt Date: 20110701
  Transmission Date: 20120608
  Serious: No
  Sender: FDA-Public Use
  Company Number: US-MYLANLABS-2011S1011017

PATIENT
  Age: 33 Year
  Sex: Female
  Weight: 82.1 kg

DRUGS (1)
  1. AMNESTEEM [Suspect]
     Indication: ACNE CYSTIC
     Route: 048
     Dates: start: 20110321, end: 20110524

REACTIONS (6)
  - MOOD SWINGS [None]
  - MOOD ALTERED [None]
  - MYALGIA [None]
  - ASTHENIA [None]
  - DRY MOUTH [None]
  - ARTHRALGIA [None]
